FAERS Safety Report 21526755 (Version 1)
Quarter: 2022Q4

REPORT INFORMATION
  Report Type: Report from Study
  Country: MY (occurrence: MY)
  Receive Date: 20221031
  Receipt Date: 20221031
  Transmission Date: 20230113
  Serious: Yes (Other)
  Sender: FDA-Public Use
  Company Number: MY-NOVARTISPH-NVSC2022MY172157

PATIENT
  Age: 53 Year
  Sex: Male
  Weight: 68 kg

DRUGS (7)
  1. CAPMATINIB [Suspect]
     Active Substance: CAPMATINIB
     Indication: Non-small cell lung cancer recurrent
     Dosage: 400 MG, BID
     Route: 048
     Dates: start: 20211214
  2. CAPMATINIB [Suspect]
     Active Substance: CAPMATINIB
     Dosage: 400 MG, BID
     Route: 048
     Dates: start: 20220523
  3. CAPMATINIB [Suspect]
     Active Substance: CAPMATINIB
     Dosage: 200 MG
     Route: 065
     Dates: start: 20220114
  4. CAPMATINIB [Suspect]
     Active Substance: CAPMATINIB
     Dosage: 400 MG, BID
     Route: 065
     Dates: start: 202204
  5. FLUCONAZOLE [Suspect]
     Active Substance: FLUCONAZOLE
     Indication: Product used for unknown indication
     Dosage: UNK
     Route: 065
  6. DEXAMETHASONE [Concomitant]
     Active Substance: DEXAMETHASONE
     Indication: Product used for unknown indication
     Dosage: UNK
     Route: 065
  7. OSIMERTINIB [Concomitant]
     Active Substance: OSIMERTINIB
     Indication: Product used for unknown indication
     Dosage: UNK
     Route: 065
     Dates: start: 202106

REACTIONS (24)
  - Liver injury [Unknown]
  - Ascites [Unknown]
  - Adenosquamous cell lung cancer [Unknown]
  - Malignant neoplasm progression [Unknown]
  - Abdominal discomfort [Unknown]
  - Sepsis [Unknown]
  - Cholangitis [Unknown]
  - Jaundice [Unknown]
  - Tachypnoea [Unknown]
  - Cough [Unknown]
  - Back pain [Unknown]
  - Decreased appetite [Unknown]
  - Peripheral swelling [Unknown]
  - Asthenia [Unknown]
  - Pleural effusion [Unknown]
  - Oedema [Recovered/Resolved]
  - Nausea [Unknown]
  - Dysphagia [Unknown]
  - Pyrexia [Unknown]
  - Chills [Unknown]
  - Hypotension [Unknown]
  - Skin exfoliation [Recovered/Resolved]
  - Photosensitivity reaction [Recovered/Resolved]
  - Oedema peripheral [Unknown]

NARRATIVE: CASE EVENT DATE: 20211201
